FAERS Safety Report 7044573-1 (Version None)
Quarter: 2010Q4

REPORT INFORMATION
  Report Type: 
  Country: None (occurrence: None)
  Receive Date: 20101014
  Receipt Date: 20100913
  Transmission Date: 20110411
  Serious: No
  Sender: FDA-Public Use
  Company Number: US-BAYER-201033720NA

PATIENT
  Age: 38 Year
  Sex: Male

DRUGS (4)
  1. ULTRAVIST 300 [Suspect]
     Indication: COMPUTERISED TOMOGRAM THORAX
     Dosage: TOTAL DAILY DOSE: 75 ML  UNIT DOSE: 200 ML
     Route: 042
     Dates: start: 20100913, end: 20100913
  2. LIPITOR [Concomitant]
  3. AMLODIPINE [Concomitant]
  4. VOLUMEN [Concomitant]
     Indication: COMPUTERISED TOMOGRAM ABDOMEN
     Route: 048
     Dates: start: 20100913, end: 20100913

REACTIONS (1)
  - VOMITING [None]
